FAERS Safety Report 10309367 (Version 2)
Quarter: 2014Q3

REPORT INFORMATION
  Report Type: Spontaneous
  Country: US (occurrence: US)
  Receive Date: 20140716
  Receipt Date: 20140722
  Transmission Date: 20150326
  Serious: Yes (Hospitalization)
  Sender: FDA-Public Use
  Company Number: US-GILEAD-2014-0108848

PATIENT
  Sex: Female

DRUGS (2)
  1. REMODULIN [Concomitant]
     Active Substance: TREPROSTINIL
  2. LETAIRIS [Suspect]
     Active Substance: AMBRISENTAN
     Indication: PRODUCT USED FOR UNKNOWN INDICATION
     Dosage: 10 MG, QD
     Route: 065
     Dates: start: 20140329

REACTIONS (10)
  - Nausea [Recovered/Resolved]
  - Dry eye [Unknown]
  - Headache [Recovered/Resolved]
  - Myalgia [Unknown]
  - Restless legs syndrome [Unknown]
  - Pain [Unknown]
  - Diarrhoea [Unknown]
  - Muscle atrophy [Unknown]
  - Weight decreased [Unknown]
  - Eye pain [Unknown]
